FAERS Safety Report 8620683-X (Version None)
Quarter: 2012Q3

REPORT INFORMATION
  Report Type: 
  Country: None (occurrence: None)
  Receive Date: 20120824
  Receipt Date: 20120821
  Transmission Date: 20120928
  Serious: Yes (Death)
  Sender: FDA-Public Use
  Company Number: JP-VERTEX PHARMACEUTICAL INC.-2012-020114

PATIENT

DRUGS (8)
  1. TALION                             /01587402/ [Concomitant]
     Dosage: 20 MG, QD
     Route: 048
     Dates: start: 20120525
  2. NEXIUM [Concomitant]
     Dosage: 20 MG, QD
     Route: 048
     Dates: start: 20120525
  3. REBETOL [Concomitant]
     Indication: HEPATITIS C
     Dosage: 400 MG, QD
     Route: 048
     Dates: start: 20120525
  4. VX-950 [Suspect]
     Indication: HEPATITIS C
     Dosage: 1500 MG, QD
     Route: 048
     Dates: start: 20120525, end: 20120816
  5. LOXONIN [Concomitant]
     Dosage: 60 MG, QD
     Route: 048
     Dates: start: 20120525
  6. ANTEBATE [Concomitant]
     Dosage: 5 G, QD
     Route: 061
     Dates: start: 20120525, end: 20120601
  7. PEGINTERFERON ALFA-2B [Concomitant]
     Indication: HEPATITIS C
     Dosage: 1.5 MCG/KG/WEEK
     Route: 058
     Dates: start: 20120525, end: 20120816
  8. SELBEX [Concomitant]
     Dosage: 50 MG, QD
     Route: 048
     Dates: start: 20120525

REACTIONS (1)
  - HEAT ILLNESS [None]
